FAERS Safety Report 12171668 (Version 1)
Quarter: 2016Q1

REPORT INFORMATION
  Report Type: Report from Study
  Country: US (occurrence: US)
  Receive Date: 20160311
  Receipt Date: 20160311
  Transmission Date: 20160526
  Serious: Yes (Death)
  Sender: FDA-Public Use
  Company Number: US-JNJFOC-20160308680

PATIENT
  Sex: Male

DRUGS (1)
  1. REMICADE [Suspect]
     Active Substance: INFLIXIMAB
     Indication: RHEUMATOID ARTHRITIS
     Route: 042
     Dates: end: 2015

REACTIONS (4)
  - Weight decreased [Not Recovered/Not Resolved]
  - Off label use [Unknown]
  - Tongue cancer metastatic [Fatal]
  - Product use issue [Unknown]

NARRATIVE: CASE EVENT DATE: 2011
